FAERS Safety Report 17391666 (Version 1)
Quarter: 2020Q1

REPORT INFORMATION
  Report Type: Spontaneous
  Country: GB (occurrence: GB)
  Receive Date: 20200207
  Receipt Date: 20200207
  Transmission Date: 20200409
  Serious: Yes (Hospitalization, Other)
  Sender: FDA-Public Use
  Company Number: GB-PFIZER INC-2020050068

PATIENT
  Age: 43 Year
  Sex: Male

DRUGS (1)
  1. GENOTROPIN [Suspect]
     Active Substance: SOMATROPIN
     Dosage: 0.3 MG, DAILY
     Route: 058
     Dates: start: 2017

REACTIONS (6)
  - Cardiac disorder [Unknown]
  - Balance disorder [Unknown]
  - Speech disorder [Unknown]
  - Incorrect dose administered [Unknown]
  - Delirium [Unknown]
  - Pneumonia [Unknown]
